FAERS Safety Report 23615801 (Version 1)
Quarter: 2024Q1

REPORT INFORMATION
  Report Type: Spontaneous
  Country: US (occurrence: US)
  Receive Date: 20240311
  Receipt Date: 20240311
  Transmission Date: 20240409
  Serious: No
  Sender: FDA-Public Use
  Company Number: US-BRISTOL-MYERS SQUIBB COMPANY-2024-038745

PATIENT
  Sex: Female

DRUGS (2)
  1. SOTYKTU [Suspect]
     Active Substance: DEUCRAVACITINIB
     Indication: Psoriasis
     Dosage: DOSE : UNKNOWN;     FREQ : UNKNOWN
  2. SOTYKTU [Suspect]
     Active Substance: DEUCRAVACITINIB
     Indication: Eczema

REACTIONS (2)
  - Nausea [Unknown]
  - Vomiting [Unknown]
